FAERS Safety Report 20896292 (Version 4)
Quarter: 2023Q1

REPORT INFORMATION
  Report Type: Report from Study
  Country: GB (occurrence: GB)
  Receive Date: 20220531
  Receipt Date: 20230227
  Transmission Date: 20230417
  Serious: Yes (Other)
  Sender: FDA-Public Use
  Company Number: GB-SAMSUNG BIOEPIS-SB-2022-04594

PATIENT
  Age: 58 Year
  Sex: Female

DRUGS (2)
  1. METHOTREXATE SODIUM [Suspect]
     Active Substance: METHOTREXATE SODIUM
     Dosage: UNKNOWN
     Route: 065
  2. ETANERCEPT [Suspect]
     Active Substance: ETANERCEPT
     Indication: Rheumatoid arthritis
     Dosage: 50 MG, WEEKLY
     Route: 058
     Dates: start: 20220214

REACTIONS (22)
  - Type 1 diabetes mellitus [Not Recovered/Not Resolved]
  - Anxiety [Unknown]
  - Injection site discomfort [Recovering/Resolving]
  - Nausea [Not Recovered/Not Resolved]
  - Malaise [Not Recovered/Not Resolved]
  - General physical health deterioration [Not Recovered/Not Resolved]
  - Fatigue [Not Recovered/Not Resolved]
  - Burning sensation [Not Recovered/Not Resolved]
  - Vitamin D decreased [Not Recovered/Not Resolved]
  - Dry skin [Not Recovered/Not Resolved]
  - Pallor [Not Recovered/Not Resolved]
  - Stress [Not Recovered/Not Resolved]
  - Head discomfort [Not Recovered/Not Resolved]
  - Visual impairment [Not Recovered/Not Resolved]
  - Injection site pain [Unknown]
  - Fear of injection [Unknown]
  - Insulin resistance [Not Recovered/Not Resolved]
  - Arthralgia [Unknown]
  - Headache [Not Recovered/Not Resolved]
  - Loss of personal independence in daily activities [Unknown]
  - Weight increased [Not Recovered/Not Resolved]
  - Myalgia [Unknown]
